FAERS Safety Report 9216426 (Version 8)
Quarter: 2014Q3

REPORT INFORMATION
  Report Type: Spontaneous
  Country: US (occurrence: US)
  Receive Date: 20130408
  Receipt Date: 20140822
  Transmission Date: 20150326
  Serious: Yes (Hospitalization, Other)
  Sender: FDA-Public Use
  Company Number: US-009507513-1304USA002520

PATIENT
  Sex: Female
  Weight: 59.41 kg

DRUGS (2)
  1. FOSAMAX [Suspect]
     Active Substance: ALENDRONATE SODIUM
     Indication: OSTEOPOROSIS
     Dosage: 70 MG, QW
     Route: 048
     Dates: start: 20060911, end: 20061221
  2. FOSAMAX PLUS D [Suspect]
     Active Substance: ALENDRONATE SODIUM\CHOLECALCIFEROL
     Indication: OSTEOPOROSIS
     Dosage: 70MG-2800UNITS, QW
     Route: 048
     Dates: start: 20061221, end: 20081219

REACTIONS (46)
  - Jaw fracture [Unknown]
  - Cyst [Unknown]
  - Debridement [Unknown]
  - Fatigue [Unknown]
  - VIIth nerve paralysis [Unknown]
  - Jaw operation [Unknown]
  - Bone graft [Unknown]
  - Renal failure acute [Unknown]
  - Dental caries [Unknown]
  - Temporomandibular joint syndrome [Unknown]
  - Hypoaesthesia [Unknown]
  - Medical device removal [Unknown]
  - Renal failure chronic [Not Recovered/Not Resolved]
  - Osteomyelitis [Unknown]
  - Jaw operation [Unknown]
  - Oral disorder [Unknown]
  - Hypothyroidism [Unknown]
  - Depression [Unknown]
  - Device failure [Unknown]
  - Tooth infection [Recovering/Resolving]
  - Oral infection [Unknown]
  - Basedow^s disease [Unknown]
  - Bursitis [Unknown]
  - Tooth fracture [Recovering/Resolving]
  - Fracture [Unknown]
  - Tooth infection [Unknown]
  - Tooth infection [Unknown]
  - Lung volume reduction surgery [Unknown]
  - Joint dislocation [Unknown]
  - Overdose [Unknown]
  - Emphysema [Unknown]
  - Device related infection [Unknown]
  - Jaw operation [Unknown]
  - Jaw operation [Unknown]
  - Hypercholesterolaemia [Unknown]
  - Dyspnoea [Unknown]
  - Osteonecrosis of jaw [Unknown]
  - Abscess [Unknown]
  - Insomnia [Unknown]
  - Internal fixation of fracture [Unknown]
  - Tooth extraction [Unknown]
  - Bladder spasm [Unknown]
  - Jaw operation [Unknown]
  - Jaw disorder [Unknown]
  - Gastrooesophageal reflux disease [Unknown]
  - Dysphagia [Unknown]

NARRATIVE: CASE EVENT DATE: 20060919
